FAERS Safety Report 20735372 (Version 1)
Quarter: 2022Q2

REPORT INFORMATION
  Report Type: Spontaneous
  Country: IT (occurrence: None)
  Receive Date: 20220421
  Receipt Date: 20220421
  Transmission Date: 20220721
  Serious: Yes (Other)
  Sender: FDA-Public Use
  Company Number: IT-ROCHE-3075153

PATIENT
  Age: 71 Year
  Sex: Female

DRUGS (1)
  1. HERCEPTIN [Suspect]
     Active Substance: TRASTUZUMAB
     Indication: Breast cancer
     Route: 041
     Dates: start: 2020

REACTIONS (6)
  - Hypersensitivity [Unknown]
  - Adenocarcinoma [Unknown]
  - Bladder cancer [Unknown]
  - Ocular neoplasm [Unknown]
  - Pelvic pain [Unknown]
  - Constipation [Unknown]

NARRATIVE: CASE EVENT DATE: 20201201
